FAERS Safety Report 18172880 (Version 2)
Quarter: 2020Q4

REPORT INFORMATION
  Report Type: Report from Study
  Country: US (occurrence: US)
  Receive Date: 20200819
  Receipt Date: 20201013
  Transmission Date: 20210113
  Serious: No
  Sender: FDA-Public Use
  Company Number: US-SHIRE-US202026688

PATIENT
  Sex: Female

DRUGS (2)
  1. LIALDA [Suspect]
     Active Substance: MESALAMINE
     Indication: COLITIS ULCERATIVE
     Dosage: 2.4 GRAM
     Route: 065
     Dates: start: 201802
  2. LIALDA [Suspect]
     Active Substance: MESALAMINE
     Dosage: 2.4 MILLIGRAM, 2X/DAY:BID (1.2 MG 2 TABS Q 12 HOURS)
     Route: 065

REACTIONS (7)
  - Insurance issue [Unknown]
  - Condition aggravated [Unknown]
  - Hypersensitivity [Unknown]
  - Product dose omission issue [Unknown]
  - Drug ineffective [Unknown]
  - Product physical issue [Unknown]
  - Product odour abnormal [Unknown]
